FAERS Safety Report 8035678-7 (Version None)
Quarter: 2011Q4

REPORT INFORMATION
  Report Type: 
  Country: None (occurrence: None)
  Receive Date: 20111222
  Receipt Date: 20111212
  Transmission Date: 20120403
  Serious: Yes (Other)
  Sender: FDA-Public Use
  Company Number: US-1188966

PATIENT
  Age: 82 Year
  Sex: Female

DRUGS (3)
  1. VIGAMOX [Suspect]
     Indication: POSTOPERATIVE CARE
     Dosage: TID, OPHTHALMIC
     Route: 047
  2. PREDNISOLONE ACETATE [Suspect]
     Indication: POSTOPERATIVE CARE
     Dosage: TID OPTHALMIC
     Route: 047
  3. BROMDAY [Suspect]
     Indication: POSTOPERATIVE CARE
     Dosage: QD OPHTHALMIC
     Route: 047

REACTIONS (5)
  - HYPOTONY OF EYE [None]
  - EYE PAIN [None]
  - VISUAL ACUITY REDUCED [None]
  - BLINDNESS UNILATERAL [None]
  - ENDOPHTHALMITIS [None]
